FAERS Safety Report 23983695 (Version 5)
Quarter: 2024Q3

REPORT INFORMATION
  Report Type: Report from Study
  Country: NL (occurrence: NL)
  Receive Date: 20240618
  Receipt Date: 20240916
  Transmission Date: 20241016
  Serious: Yes (Hospitalization)
  Sender: ABBVIE
  Company Number: NL-ABBVIE-5803464

PATIENT
  Age: 67 Year
  Sex: Male

DRUGS (8)
  1. CARBIDOPA\LEVODOPA [Suspect]
     Active Substance: CARBIDOPA\LEVODOPA
     Indication: Parkinson^s disease
     Dosage: MD: 4.6 ML, CD: 5.6ML/H, ED:1.00 ML, CND: 2.7ML/H, END: 1.00ML?REMAINS AT 24 HOURS
     Route: 050
     Dates: start: 20240528, end: 20240530
  2. CARBIDOPA\LEVODOPA [Suspect]
     Active Substance: CARBIDOPA\LEVODOPA
     Dosage: MD: 4.6 ML, CD: 5.6ML/H, ED:1.00ML?REMAINS AT 24 HOURS
     Route: 050
     Dates: start: 20240527, end: 20240528
  3. CARBIDOPA\LEVODOPA [Suspect]
     Active Substance: CARBIDOPA\LEVODOPA
     Dosage: CND: 3.4ML/H, END: 1.50ML?REMAINS AT 24 HOURS
     Route: 050
     Dates: start: 20240604, end: 20240607
  4. CARBIDOPA\LEVODOPA [Suspect]
     Active Substance: CARBIDOPA\LEVODOPA
     Route: 050
  5. CARBIDOPA\LEVODOPA [Suspect]
     Active Substance: CARBIDOPA\LEVODOPA
     Dosage: CND: 3.8ML/H, END: 1.50ML?REMAINS AT 24 HOURS
     Route: 050
     Dates: start: 20240611
  6. CARBIDOPA\LEVODOPA [Suspect]
     Active Substance: CARBIDOPA\LEVODOPA
     Dosage: CND: 3.6ML/H, END: 1.50ML?REMAINS AT 24 HOURS
     Route: 050
     Dates: start: 20240607, end: 20240611
  7. CARBIDOPA\LEVODOPA [Suspect]
     Active Substance: CARBIDOPA\LEVODOPA
     Dosage: MD: 5.0 ML, CD: 6.1 ML/H, ED: 2.00 ML, CND: 3.2ML/H, END: 1.50ML?REMAINS AT 24 HOURS
     Route: 050
     Dates: start: 20240530, end: 20240604
  8. CARBIDOPA\ENTACAPONE\LEVODOPA [Suspect]
     Active Substance: CARBIDOPA\ENTACAPONE\LEVODOPA
     Indication: Product used for unknown indication
     Route: 065
     Dates: end: 2024

REACTIONS (11)
  - Mental disorder [Recovered/Resolved]
  - Stoma site erythema [Not Recovered/Not Resolved]
  - Device issue [Recovered/Resolved]
  - Stoma site pain [Not Recovered/Not Resolved]
  - Malaise [Not Recovered/Not Resolved]
  - Dizziness [Not Recovered/Not Resolved]
  - On and off phenomenon [Not Recovered/Not Resolved]
  - Pain [Not Recovered/Not Resolved]
  - Bradykinesia [Not Recovered/Not Resolved]
  - Gait disturbance [Not Recovered/Not Resolved]
  - Musculoskeletal stiffness [Not Recovered/Not Resolved]

NARRATIVE: CASE EVENT DATE: 20240101
